FAERS Safety Report 5070125-9 (Version None)
Quarter: 2006Q3

REPORT INFORMATION
  Report Type: 
  Country: None (occurrence: None)
  Receive Date: 20060802
  Receipt Date: 20060802
  Transmission Date: 20061208
  Serious: Yes (Hospitalization)
  Sender: FDA-Public Use
  Company Number: None

PATIENT
  Age: 73 Year
  Sex: Female
  Weight: 102 kg

DRUGS (1)
  1. EZETIMIBE 10 MG [Suspect]
     Indication: HYPERLIPIDAEMIA
     Dosage: PO DAILY
     Route: 048
     Dates: start: 20050605

REACTIONS (2)
  - POLLAKIURIA [None]
  - POLYURIA [None]
